FAERS Safety Report 5279118-X (Version None)
Quarter: 2007Q1

REPORT INFORMATION
  Report Type: 
  Country: None (occurrence: None)
  Receive Date: 20061208
  Receipt Date: 20050531
  Transmission Date: 20070707
  Serious: No
  Sender: FDA-Public Use
  Company Number: 2005UW08442

PATIENT
  Age: 65 Year
  Sex: Female

DRUGS (8)
  1. CRESTOR [Suspect]
     Dosage: 20 MG QD PO
     Route: 048
  2. POTASSIUM ACETATE [Concomitant]
  3. ASPIRIN [Concomitant]
  4. NORVASC [Concomitant]
  5. LASIX [Concomitant]
  6. COREG [Concomitant]
  7. GLYBURIDE [Concomitant]
  8. INSULIN [Concomitant]

REACTIONS (1)
  - BLOOD CREATININE INCREASED [None]
